FAERS Safety Report 11661497 (Version 1)
Quarter: 2015Q4

REPORT INFORMATION
  Report Type: Report from Study
  Country: AU (occurrence: AU)
  Receive Date: 20151026
  Receipt Date: 20151026
  Transmission Date: 20160304
  Serious: Yes (Hospitalization, Other)
  Sender: FDA-Public Use
  Company Number: AU-REGENERON PHARMACEUTICALS, INC.-2015-13146

PATIENT

DRUGS (1)
  1. EYLEA [Suspect]
     Active Substance: AFLIBERCEPT
     Indication: NEOVASCULAR AGE-RELATED MACULAR DEGENERATION
     Dosage: 2 MG MILLIGRAM(S), UNDISCLOSED
     Route: 031
     Dates: start: 20150408

REACTIONS (6)
  - Heart rate irregular [Unknown]
  - Anxiety [Recovered/Resolved]
  - Foreign body sensation in eyes [Recovered/Resolved]
  - Speech disorder [Recovering/Resolving]
  - Neurological symptom [Recovering/Resolving]
  - Cerebrovascular accident [Recovering/Resolving]

NARRATIVE: CASE EVENT DATE: 20150908
